FAERS Safety Report 8089169-8 (Version None)
Quarter: 2012Q1

REPORT INFORMATION
  Report Type: 
  Country: None (occurrence: None)
  Receive Date: 20120128
  Receipt Date: 20110708
  Transmission Date: 20120608
  Serious: No
  Sender: FDA-Public Use
  Company Number: US-ABBOTT-11P-163-0732206-00

PATIENT
  Sex: Male
  Weight: 78.996 kg

DRUGS (5)
  1. HUMIRA [Suspect]
     Indication: CROHN'S DISEASE
     Dosage: 1ST LOADING DOSE, ONCE
     Route: 058
     Dates: start: 20110527, end: 20110527
  2. HUMIRA [Suspect]
     Dosage: 2ND LOADING DOSE, ONCE
     Route: 058
     Dates: start: 20110612, end: 20110612
  3. HUMIRA [Suspect]
     Dates: end: 20110623
  4. PREDNISONE TAB [Concomitant]
     Indication: PRODUCT USED FOR UNKNOWN INDICATION
     Dosage: RECENTLY, WEANING OFF MEDICATION
  5. IMURAN [Concomitant]
     Indication: PRODUCT USED FOR UNKNOWN INDICATION

REACTIONS (3)
  - PARAESTHESIA [None]
  - ABDOMINAL PAIN [None]
  - MUSCLE SPASMS [None]
